FAERS Safety Report 10779728 (Version 1)
Quarter: 2015Q1

REPORT INFORMATION
  Report Type: Spontaneous
  Country: US (occurrence: None)
  Receive Date: 20150209
  Receipt Date: 20150209
  Transmission Date: 20150721
  Serious: No
  Sender: FDA-Public Use
  Company Number: None

PATIENT
  Age: 39 Year
  Sex: Male
  Weight: 88.45 kg

DRUGS (1)
  1. DIVALPROEX SODIUM. [Suspect]
     Active Substance: DIVALPROEX SODIUM
     Indication: BIPOLAR DISORDER

REACTIONS (6)
  - Mood swings [None]
  - Irritability [None]
  - Hallucination [None]
  - Product substitution issue [None]
  - Drug effect incomplete [None]
  - Product formulation issue [None]

NARRATIVE: CASE EVENT DATE: 20150206
